FAERS Safety Report 7080984-6 (Version None)
Quarter: 2010Q4

REPORT INFORMATION
  Report Type: 
  Country: None (occurrence: None)
  Receive Date: 20101102
  Receipt Date: 20101102
  Transmission Date: 20110411
  Serious: No
  Sender: FDA-Public Use
  Company Number: None

PATIENT

DRUGS (2)
  1. QUESTRAN LIGHT [Suspect]
  2. QUESTRAN LIGHT [Suspect]

REACTIONS (1)
  - PRODUCT FORMULATION ISSUE [None]
